FAERS Safety Report 17519369 (Version 1)
Quarter: 2020Q1

REPORT INFORMATION
  Report Type: Report from Study
  Country: FR (occurrence: FR)
  Receive Date: 20200309
  Receipt Date: 20200309
  Transmission Date: 20200409
  Serious: Yes (Hospitalization)
  Sender: FDA-Public Use
  Company Number: FR-MYLANLABS-2020M1024179

PATIENT
  Age: 32 Year
  Sex: Female
  Weight: 68 kg

DRUGS (11)
  1. METHOTREXATE. [Suspect]
     Active Substance: METHOTREXATE
     Dosage: 5 MG, QW
     Route: 058
     Dates: start: 20180718, end: 201808
  2. TRIDESONIT [Concomitant]
     Active Substance: DESONIDE
     Indication: ROUTINE HEALTH MAINTENANCE
     Dosage: 30 G/TUBE
     Route: 061
     Dates: start: 20171208
  3. METHOTREXATE. [Suspect]
     Active Substance: METHOTREXATE
     Dosage: 15 MG, QW
     Route: 058
     Dates: start: 20190513, end: 20190823
  4. METHOTREXATE. [Suspect]
     Active Substance: METHOTREXATE
     Indication: PROPHYLAXIS
     Dosage: UNK
     Dates: start: 201802
  5. METHOTREXATE. [Suspect]
     Active Substance: METHOTREXATE
     Dosage: 15 MG, QW
     Route: 058
     Dates: start: 20190912, end: 20200106
  6. CLOBEX [Concomitant]
     Active Substance: CLOBETASOL PROPIONATE
     Indication: ROUTINE HEALTH MAINTENANCE
     Dosage: 125 G/TUBE
     Route: 061
     Dates: start: 20180920
  7. METHOTREXATE. [Suspect]
     Active Substance: METHOTREXATE
     Indication: DERMATITIS ATOPIC
     Dosage: 20 MG, QW
     Route: 058
     Dates: start: 20180129, end: 20180415
  8. METHOTREXATE. [Suspect]
     Active Substance: METHOTREXATE
     Dosage: 20 MG, QW
     Route: 058
     Dates: start: 20200107
  9. METHOTREXATE. [Suspect]
     Active Substance: METHOTREXATE
     Dosage: 15 MG, QW
     Route: 058
     Dates: start: 20180416, end: 20180605
  10. METHOTREXATE. [Suspect]
     Active Substance: METHOTREXATE
     Dosage: 10 MG, QW
     Route: 058
     Dates: start: 20180606, end: 20180717
  11. BETAMETHASONE DIPROPIONATE. [Concomitant]
     Active Substance: BETAMETHASONE DIPROPIONATE
     Indication: ROUTINE HEALTH MAINTENANCE
     Dosage: 30 G/TUBE, 3 DOSES OR TUBES PER DAY
     Route: 061
     Dates: start: 20171208

REACTIONS (1)
  - Cholecystitis [Recovered/Resolved]

NARRATIVE: CASE EVENT DATE: 20200106
